FAERS Safety Report 8578361-1 (Version None)
Quarter: 2012Q3

REPORT INFORMATION
  Report Type: 
  Country: None (occurrence: None)
  Receive Date: 20120726
  Receipt Date: 20120712
  Transmission Date: 20120928
  Serious: Yes (Hospitalization)
  Sender: FDA-Public Use
  Company Number: USA/USA/12/0024999

PATIENT
  Age: 65 Year
  Sex: Female
  Weight: 79.8331 kg

DRUGS (3)
  1. LEVOFLOXACIN [Suspect]
     Indication: BRONCHITIS
     Dosage: 750 MG, 750 MG ONE EVERY 4 HRS, ORAL
     Route: 048
     Dates: start: 20120708, end: 20120708
  2. CITALOPRAM HYDROBROMIDE [Concomitant]
  3. RISPERDAL [Concomitant]

REACTIONS (9)
  - OEDEMA PERIPHERAL [None]
  - MEDICATION ERROR [None]
  - INSOMNIA [None]
  - EYELID DISORDER [None]
  - CONSTIPATION [None]
  - FEELING OF BODY TEMPERATURE CHANGE [None]
  - CARDIAC ENZYMES INCREASED [None]
  - NAUSEA [None]
  - HEADACHE [None]
